FAERS Safety Report 11776342 (Version 3)
Quarter: 2016Q1

REPORT INFORMATION
  Report Type: Report from Study
  Country: CA (occurrence: CA)
  Receive Date: 20151125
  Receipt Date: 20160118
  Transmission Date: 20160525
  Serious: Yes (Death, Other)
  Sender: FDA-Public Use
  Company Number: CA-ROCHE-1435442

PATIENT
  Age: 68 Year
  Sex: Female
  Weight: 91 kg

DRUGS (28)
  1. ACETAMINOPHEN. [Concomitant]
     Active Substance: ACETAMINOPHEN
     Indication: PREMEDICATION
     Route: 048
     Dates: start: 20100810
  2. AMIODARONE [Concomitant]
     Active Substance: AMIODARONE
  3. FISH OIL [Concomitant]
     Active Substance: FISH OIL
  4. SOLU-CORTEF [Concomitant]
     Active Substance: HYDROCORTISONE SODIUM SUCCINATE
     Indication: PREMEDICATION
     Route: 042
     Dates: start: 20100810
  5. ACTEMRA [Suspect]
     Active Substance: TOCILIZUMAB
     Indication: RHEUMATOID ARTHRITIS
     Route: 058
     Dates: start: 20150520, end: 2015
  6. DIPHENHYDRAMINE HCL [Concomitant]
     Active Substance: DIPHENHYDRAMINE HYDROCHLORIDE
     Indication: PREMEDICATION
     Route: 048
     Dates: start: 20100810
  7. OXYBUTYNIN [Concomitant]
     Active Substance: OXYBUTYNIN
  8. RITUXAN [Suspect]
     Active Substance: RITUXIMAB
     Indication: RHEUMATOID ARTHRITIS
     Route: 042
     Dates: start: 20100810
  9. ATORVASTATIN [Concomitant]
     Active Substance: ATORVASTATIN
  10. PRADAX [Concomitant]
     Active Substance: DABIGATRAN ETEXILATE MESYLATE
  11. WARFARIN [Concomitant]
     Active Substance: WARFARIN
  12. PREDNISONE. [Suspect]
     Active Substance: PREDNISONE
     Dosage: TAPERING, LONG STANDING USE
     Route: 048
  13. PRADAXA [Concomitant]
     Active Substance: DABIGATRAN ETEXILATE MESYLATE
     Indication: ATRIAL FIBRILLATION
     Route: 048
  14. AZATHIOPRINE. [Suspect]
     Active Substance: AZATHIOPRINE
     Indication: RHEUMATOID ARTHRITIS
     Route: 048
  15. DILTIAZEM [Concomitant]
     Active Substance: DILTIAZEM
     Indication: HYPERTENSION
     Route: 048
  16. EFFEXOR [Concomitant]
     Active Substance: VENLAFAXINE HYDROCHLORIDE
  17. FELODIPINE. [Concomitant]
     Active Substance: FELODIPINE
  18. ACCUTANE [Concomitant]
     Active Substance: ISOTRETINOIN
     Route: 065
     Dates: start: 201410
  19. RABEPRAZOLE [Concomitant]
     Active Substance: RABEPRAZOLE
  20. ACETAMINOPHEN EXTRA STRENGTH [Concomitant]
     Active Substance: ACETAMINOPHEN
  21. CYCLOBENZAPRINE [Concomitant]
     Active Substance: CYCLOBENZAPRINE
  22. TECTA [Concomitant]
     Active Substance: PANTOPRAZOLE MAGNESIUM
     Indication: GASTROOESOPHAGEAL REFLUX DISEASE
     Route: 048
  23. EFFEXOR [Concomitant]
     Active Substance: VENLAFAXINE HYDROCHLORIDE
     Route: 048
  24. PREDNISONE. [Suspect]
     Active Substance: PREDNISONE
     Indication: RHEUMATOID ARTHRITIS
     Dosage: 50 MG PO HS PRIOR TO AND MORNING OF INFUSION
     Route: 048
     Dates: start: 20140814
  25. RITUXAN [Suspect]
     Active Substance: RITUXIMAB
     Route: 042
     Dates: start: 20140827, end: 20150128
  26. MELOXICAM. [Suspect]
     Active Substance: MELOXICAM
     Indication: PRODUCT USED FOR UNKNOWN INDICATION
     Route: 065
     Dates: end: 201411
  27. FUROSEMIDE. [Concomitant]
     Active Substance: FUROSEMIDE
     Indication: FLUID RETENTION
     Route: 048
  28. VITAMIN C [Concomitant]
     Active Substance: ASCORBIC ACID

REACTIONS (9)
  - Arthropathy [Unknown]
  - Urinary incontinence [Unknown]
  - Cough [Unknown]
  - Arthropathy [Unknown]
  - Rheumatoid arthritis [Unknown]
  - Large intestine perforation [Fatal]
  - Rash [Unknown]
  - Cardiac arrest [Fatal]
  - Hepatic enzyme increased [Unknown]

NARRATIVE: CASE EVENT DATE: 2013
